FAERS Safety Report 7158912-4 (Version None)
Quarter: 2010Q4

REPORT INFORMATION
  Report Type: 
  Country: None (occurrence: None)
  Receive Date: 20101130
  Receipt Date: 20101117
  Transmission Date: 20110411
  Serious: Yes (Disabling, Other)
  Sender: FDA-Public Use
  Company Number: LEO-2010-01051

PATIENT
  Age: 72 Year
  Sex: Female
  Weight: 70 kg

DRUGS (10)
  1. INNOHEP [Suspect]
     Indication: POLYCYTHAEMIA
     Dosage: 2500 IU (2400 IU,1 IN 1 D),SUBCUTANEOUS ; 1000 IU (3500 IU,2 IN 1 WK),SUBCUTANEOUS
     Route: 058
     Dates: start: 20081216
  2. INNOHEP [Suspect]
     Indication: THROMBOSIS
     Dosage: 2500 IU (2400 IU,1 IN 1 D),SUBCUTANEOUS ; 1000 IU (3500 IU,2 IN 1 WK),SUBCUTANEOUS
     Route: 058
     Dates: start: 20081216
  3. INNOHEP [Suspect]
     Indication: POLYCYTHAEMIA
     Dosage: 2500 IU (2400 IU,1 IN 1 D),SUBCUTANEOUS ; 1000 IU (3500 IU,2 IN 1 WK),SUBCUTANEOUS
     Route: 058
     Dates: start: 20101016
  4. INNOHEP [Suspect]
     Indication: THROMBOSIS
     Dosage: 2500 IU (2400 IU,1 IN 1 D),SUBCUTANEOUS ; 1000 IU (3500 IU,2 IN 1 WK),SUBCUTANEOUS
     Route: 058
     Dates: start: 20101016
  5. NOVO-QUININE(QUININE SULFATE) [Concomitant]
  6. NAPROXEN [Concomitant]
  7. COZAAR [Concomitant]
  8. VITAMIN D [Concomitant]
  9. CYANOCOBALAMIN [Concomitant]
  10. TYLENOL ARTHRITIS EXTENDED RELIEF (PARACETAMOL) [Concomitant]

REACTIONS (2)
  - ONYCHOCLASIS [None]
  - SKIN ATROPHY [None]
